FAERS Safety Report 6099513-9 (Version None)
Quarter: 2009Q1

REPORT INFORMATION
  Report Type: 
  Country: None (occurrence: None)
  Receive Date: 20090303
  Receipt Date: 20090225
  Transmission Date: 20090719
  Serious: Yes (Hospitalization)
  Sender: FDA-Public Use
  Company Number: US-BIOGENIDEC-2009BI000698

PATIENT
  Age: 36 Year
  Sex: Female

DRUGS (6)
  1. AVONEX [Suspect]
     Indication: MULTIPLE SCLEROSIS
     Route: 030
     Dates: start: 19960501, end: 20031124
  2. AVONEX [Suspect]
     Route: 030
     Dates: start: 20040701
  3. IMMUNE GLOBULIN INTRAVENOUS (HUMAN) [Concomitant]
  4. MULTI-VITAMINS [Concomitant]
  5. CALCIUM PLUS VITAMIN D [Concomitant]
  6. XANAX [Concomitant]

REACTIONS (11)
  - ABNORMAL LABOUR [None]
  - BACK PAIN [None]
  - EMOTIONAL DISTRESS [None]
  - MICTURITION URGENCY [None]
  - MULTIPLE SCLEROSIS RELAPSE [None]
  - MUSCLE SPASTICITY [None]
  - OPTIC NEURITIS [None]
  - PELVIC MASS [None]
  - POLLAKIURIA [None]
  - SCOTOMA [None]
  - VISION BLURRED [None]
